FAERS Safety Report 13578260 (Version 1)
Quarter: 2017Q2

REPORT INFORMATION
  Report Type: Spontaneous
  Country: BR (occurrence: BR)
  Receive Date: 20170524
  Receipt Date: 20170524
  Transmission Date: 20170830
  Serious: Yes (Hospitalization, Other)
  Sender: FDA-Public Use
  Company Number: BR-PFIZER INC-2017221552

PATIENT
  Sex: Male

DRUGS (3)
  1. EFFEXOR XR [Suspect]
     Active Substance: VENLAFAXINE HYDROCHLORIDE
     Dosage: 150 MG, UNK
     Dates: start: 2009
  2. EFFEXOR XR [Suspect]
     Active Substance: VENLAFAXINE HYDROCHLORIDE
     Dosage: 150 MG, UNK
     Dates: start: 2016
  3. SEROQUEL [Concomitant]
     Active Substance: QUETIAPINE FUMARATE

REACTIONS (14)
  - Infection [Unknown]
  - Memory impairment [Unknown]
  - Suicide attempt [Unknown]
  - Asphyxia [Unknown]
  - Skin graft failure [Unknown]
  - Diplopia [Unknown]
  - Visual impairment [Unknown]
  - Pulmonary embolism [Unknown]
  - Weight increased [Unknown]
  - Gait disturbance [Unknown]
  - Thermal burn [Unknown]
  - Speech disorder [Unknown]
  - Wound [Unknown]
  - Germ cell cancer [Unknown]

NARRATIVE: CASE EVENT DATE: 2014
